FAERS Safety Report 4776392-0 (Version None)
Quarter: 2005Q3

REPORT INFORMATION
  Report Type: 
  Country: None (occurrence: None)
  Receive Date: 20050921
  Receipt Date: 20050905
  Transmission Date: 20060218
  Serious: Yes (Other)
  Sender: FDA-Public Use
  Company Number: 12150

PATIENT
  Age: 37 Year
  Sex: Female

DRUGS (3)
  1. METHOTREXATE [Suspect]
     Indication: RHEUMATOID ARTHRITIS
     Dosage: 15 MG WEEKLY PO
     Route: 048
     Dates: start: 20030929
  2. FOLIC ACID [Concomitant]
  3. IBURPROFEN [Concomitant]

REACTIONS (4)
  - ABDOMINAL PAIN LOWER [None]
  - DISEASE RECURRENCE [None]
  - VAGINAL INFECTION [None]
  - VULVOVAGINAL MYCOTIC INFECTION [None]
